FAERS Safety Report 12650434 (Version 2)
Quarter: 2016Q3

REPORT INFORMATION
  Report Type: Spontaneous
  Country: AU (occurrence: AU)
  Receive Date: 20160814
  Receipt Date: 20160914
  Transmission Date: 20161109
  Serious: Yes (Other)
  Sender: FDA-Public Use
  Company Number: AU-BEH-2016072417

PATIENT
  Age: 24 Year
  Sex: Female
  Weight: 75 kg

DRUGS (3)
  1. HIZENTRA [Suspect]
     Active Substance: HUMAN IMMUNOGLOBULIN G
     Indication: IMMUNODEFICIENCY
     Dosage: 2 G, QOD
     Route: 058
     Dates: start: 20160805
  2. SYMBICORT [Concomitant]
     Active Substance: BUDESONIDE\FORMOTEROL FUMARATE DIHYDRATE
     Indication: ASTHMA
     Route: 048
  3. CLARITHROMYCIN. [Concomitant]
     Active Substance: CLARITHROMYCIN
     Indication: LUNG INFECTION
     Dosage: 250 MG, QD
     Route: 048

REACTIONS (7)
  - Subcutaneous abscess [Not Recovered/Not Resolved]
  - Malaise [Not Recovered/Not Resolved]
  - Administration site cellulitis [Not Recovered/Not Resolved]
  - Administration site mass [Not Recovered/Not Resolved]
  - Tachycardia [Not Recovered/Not Resolved]
  - Erythema [Not Recovered/Not Resolved]
  - Body temperature increased [Not Recovered/Not Resolved]

NARRATIVE: CASE EVENT DATE: 20160805
